FAERS Safety Report 9728328 (Version 3)
Quarter: 2014Q1

REPORT INFORMATION
  Report Type: Spontaneous
  Country: JP (occurrence: JP)
  Receive Date: 20131204
  Receipt Date: 20140103
  Transmission Date: 20141002
  Serious: Yes (Life-Threatening, Hospitalization)
  Sender: FDA-Public Use
  Company Number: JP-JNJFOC-20131114409

PATIENT
  Age: 83 Year
  Sex: Female
  Weight: 45 kg

DRUGS (11)
  1. XARELTO [Suspect]
     Indication: FEMORAL ARTERY OCCLUSION
     Route: 048
     Dates: start: 20130820, end: 20131116
  2. XARELTO [Suspect]
     Indication: ILIAC ARTERY OCCLUSION
     Route: 048
     Dates: start: 20130820, end: 20131116
  3. XARELTO [Suspect]
     Indication: ATRIAL FIBRILLATION
     Route: 048
     Dates: start: 20130820, end: 20131116
  4. ASPIRIN BAYER [Interacting]
     Indication: PRODUCT USED FOR UNKNOWN INDICATION
     Route: 048
  5. AMLODIPINE [Concomitant]
     Route: 048
  6. LANSOPRAZOLE [Concomitant]
     Route: 048
  7. MAINTATE [Concomitant]
     Route: 048
  8. CRESTOR [Concomitant]
     Route: 048
  9. SYMMETREL [Concomitant]
     Route: 048
  10. MAGMITT [Concomitant]
     Route: 048
  11. LAXATIVES [Concomitant]
     Route: 065

REACTIONS (7)
  - Haemorrhage subcutaneous [Recovered/Resolved]
  - Renal impairment [Recovered/Resolved]
  - Hypernatraemia [Recovered/Resolved]
  - Platelet count decreased [Recovered/Resolved]
  - Mouth haemorrhage [Recovered/Resolved]
  - Haemoglobin decreased [Recovered/Resolved]
  - Drug interaction [Unknown]
